FAERS Safety Report 11882500 (Version 1)
Quarter: 2015Q4

REPORT INFORMATION
  Report Type: Spontaneous
  Country: US (occurrence: US)
  Receive Date: 20151231
  Receipt Date: 20151231
  Transmission Date: 20160305
  Serious: Yes (Other)
  Sender: FDA-Public Use
  Company Number: US-EAGLE PHARMACEUTICALS, INC.-US-2015EAG000002

PATIENT

DRUGS (2)
  1. BENDAMUSTINE HYDROCLHORIDE [Suspect]
     Active Substance: BENDAMUSTINE HYDROCHLORIDE
     Indication: CHRONIC LYMPHOCYTIC LEUKAEMIA
     Dosage: UNK DF, UNK
     Dates: start: 2013
  2. RITUXIMAB [Suspect]
     Active Substance: RITUXIMAB
     Indication: CHRONIC LYMPHOCYTIC LEUKAEMIA
     Dosage: UNK DF, UNK
     Dates: start: 2013

REACTIONS (7)
  - Leukaemia cutis [Recovering/Resolving]
  - Biopsy skin abnormal [Unknown]
  - Lymph node palpable [Unknown]
  - Skin lesion [Recovering/Resolving]
  - Chronic lymphocytic leukaemia [None]
  - Infection [None]
  - Malignant neoplasm progression [None]
